FAERS Safety Report 14761888 (Version 2)
Quarter: 2018Q2

REPORT INFORMATION
  Report Type: Spontaneous
  Country: KZ (occurrence: KZ)
  Receive Date: 20180416
  Receipt Date: 20180418
  Transmission Date: 20180711
  Serious: Yes (Other)
  Sender: FDA-Public Use
  Company Number: KZ-ROCHE-1547592

PATIENT
  Age: 63 Year
  Sex: Female
  Weight: 65 kg

DRUGS (17)
  1. MABTHERA [Suspect]
     Active Substance: RITUXIMAB
     Indication: SEROLOGY POSITIVE
     Dosage: TWICE
     Route: 042
     Dates: start: 201702
  2. MEDROL [Suspect]
     Active Substance: METHYLPREDNISOLONE
     Indication: RHEUMATOID ARTHRITIS
     Route: 065
     Dates: start: 2008
  3. AZATHIOPRINE. [Suspect]
     Active Substance: AZATHIOPRINE
     Indication: RHEUMATOID ARTHRITIS
     Route: 065
  4. MABTHERA [Suspect]
     Active Substance: RITUXIMAB
     Indication: POLYARTHRITIS
     Dosage: ONCE PER 2 WEEKS
     Route: 042
     Dates: start: 201303, end: 2014
  5. MABTHERA [Suspect]
     Active Substance: RITUXIMAB
     Indication: RHEUMATOID ARTHRITIS
     Dosage: ONCE PER 2 WEEKS
     Route: 042
     Dates: start: 20150217, end: 2016
  6. ACTEMRA [Suspect]
     Active Substance: TOCILIZUMAB
     Indication: RHEUMATOID ARTHRITIS
     Route: 042
     Dates: start: 201710
  7. ACTEMRA [Suspect]
     Active Substance: TOCILIZUMAB
     Indication: RHEUMATOID ARTHRITIS
     Route: 058
     Dates: start: 2018
  8. REMICADE [Suspect]
     Active Substance: INFLIXIMAB
     Indication: RHEUMATOID ARTHRITIS
     Route: 065
     Dates: start: 2012
  9. MEDROL [Suspect]
     Active Substance: METHYLPREDNISOLONE
     Route: 065
     Dates: start: 2012, end: 2014
  10. MEDROL [Suspect]
     Active Substance: METHYLPREDNISOLONE
     Route: 065
     Dates: start: 2016
  11. PLAQUENIL [Suspect]
     Active Substance: HYDROXYCHLOROQUINE SULFATE
     Indication: RHEUMATOID ARTHRITIS
     Route: 065
     Dates: start: 2009
  12. SULFASALAZINE. [Suspect]
     Active Substance: SULFASALAZINE
     Indication: RHEUMATOID ARTHRITIS
     Route: 065
  13. METHOTREXATE. [Suspect]
     Active Substance: METHOTREXATE
     Indication: RHEUMATOID ARTHRITIS
     Route: 065
     Dates: start: 2008
  14. METHOTREXATE. [Suspect]
     Active Substance: METHOTREXATE
     Route: 065
     Dates: start: 2011
  15. MEDROL [Suspect]
     Active Substance: METHYLPREDNISOLONE
     Route: 065
     Dates: start: 2011
  16. ARAVA [Suspect]
     Active Substance: LEFLUNOMIDE
     Indication: RHEUMATOID ARTHRITIS
     Route: 065
  17. SANDIMMUN [Suspect]
     Active Substance: CYCLOSPORINE
     Indication: RHEUMATOID ARTHRITIS
     Route: 065
     Dates: start: 2012, end: 201303

REACTIONS (4)
  - Alanine aminotransferase increased [Recovered/Resolved]
  - Drug ineffective [Unknown]
  - Aspartate aminotransferase increased [Recovered/Resolved]
  - Pancreatitis chronic [Recovering/Resolving]

NARRATIVE: CASE EVENT DATE: 201510
